FAERS Safety Report 12623378 (Version 1)
Quarter: 2016Q3

REPORT INFORMATION
  Report Type: Report from Study
  Country: US (occurrence: US)
  Receive Date: 20160804
  Receipt Date: 20160804
  Transmission Date: 20161109
  Serious: Yes (Hospitalization)
  Sender: FDA-Public Use
  Company Number: US-ACTELION-A-US2016-138395

PATIENT
  Age: 59 Year
  Sex: Female

DRUGS (11)
  1. VITAMIN C [Concomitant]
     Active Substance: ASCORBIC ACID
  2. UPTRAVI [Suspect]
     Active Substance: SELEXIPAG
     Indication: PULMONARY ARTERIAL HYPERTENSION
     Dosage: 1200 MCG, BID
     Route: 048
     Dates: start: 20160707
  3. DIAZEPAM. [Concomitant]
     Active Substance: DIAZEPAM
  4. ASPIRIN. [Concomitant]
     Active Substance: ASPIRIN
  5. CARVEDILOL. [Concomitant]
     Active Substance: CARVEDILOL
  6. UPTRAVI [Suspect]
     Active Substance: SELEXIPAG
     Dosage: 1000 MCG, BID
     Route: 048
  7. UPTRAVI [Suspect]
     Active Substance: SELEXIPAG
     Dosage: UNK
     Route: 048
     Dates: start: 20160421
  8. PREDNISONE. [Concomitant]
     Active Substance: PREDNISONE
  9. OPSUMIT [Concomitant]
     Active Substance: MACITENTAN
  10. OMEPRAZOLE. [Concomitant]
     Active Substance: OMEPRAZOLE
  11. FUROSEMIDE. [Concomitant]
     Active Substance: FUROSEMIDE

REACTIONS (3)
  - Pneumonia [Unknown]
  - Urinary tract infection [Unknown]
  - Piloerection [Unknown]

NARRATIVE: CASE EVENT DATE: 20160616
